FAERS Safety Report 6445646-4 (Version None)
Quarter: 2009Q4

REPORT INFORMATION
  Report Type: 
  Country: None (occurrence: None)
  Receive Date: 20091118
  Receipt Date: 20091118
  Transmission Date: 20100525
  Serious: Yes (Disabling)
  Sender: FDA-Public Use
  Company Number: None

PATIENT
  Sex: Female
  Weight: 62.3 kg

DRUGS (1)
  1. LIPITOR [Suspect]
     Indication: BLOOD CHOLESTEROL INCREASED
     Dosage: 20MG 1/DAY BY MOUTH
     Dates: start: 20080701, end: 20081001

REACTIONS (4)
  - AGEUSIA [None]
  - ANOSMIA [None]
  - HYPERSENSITIVITY [None]
  - NASOPHARYNGITIS [None]
